FAERS Safety Report 8319598-6 (Version None)
Quarter: 2012Q2

REPORT INFORMATION
  Report Type: 
  Country: None (occurrence: None)
  Receive Date: 20120427
  Receipt Date: 20120424
  Transmission Date: 20120825
  Serious: Yes (Other)
  Sender: FDA-Public Use
  Company Number: US-PFIZER INC-2012101649

PATIENT
  Sex: Female

DRUGS (2)
  1. VENLAFAXINE HCL [Suspect]
     Dosage: 225 MG, UNK
  2. VENLAFAXINE HCL [Suspect]
     Dosage: 150 MG, UNK

REACTIONS (4)
  - HAEMATOCHEZIA [None]
  - CONTUSION [None]
  - DRUG INEFFECTIVE [None]
  - NIGHT SWEATS [None]
